FAERS Safety Report 6377470-5 (Version None)
Quarter: 2009Q3

REPORT INFORMATION
  Report Type: 
  Country: None (occurrence: None)
  Receive Date: 20090923
  Receipt Date: 20090923
  Transmission Date: 20100115
  Serious: Yes (Life-Threatening, Hospitalization)
  Sender: FDA-Public Use
  Company Number: None

PATIENT
  Age: 85 Year
  Sex: Female
  Weight: 73.9 kg

DRUGS (9)
  1. HYDROMORPHONE 4MG [Suspect]
     Indication: PAIN
     Dosage: 4MG PO Q 4HR
     Route: 048
     Dates: start: 20090722, end: 20090727
  2. ASPIRIN [Concomitant]
  3. COLACE [Concomitant]
  4. AROMASIN [Concomitant]
  5. DILTIAZEM [Concomitant]
  6. DUONEB [Concomitant]
  7. OSCAL [Concomitant]
  8. TYLENOL (CAPLET) [Concomitant]
  9. SIMVASTATIN [Concomitant]

REACTIONS (3)
  - DISORIENTATION [None]
  - MENTAL STATUS CHANGES [None]
  - SOMNOLENCE [None]
